FAERS Safety Report 5247050-3 (Version None)
Quarter: 2007Q1

REPORT INFORMATION
  Report Type: 
  Country: None (occurrence: None)
  Receive Date: 20070226
  Receipt Date: 20070216
  Transmission Date: 20070707
  Serious: Yes (Hospitalization)
  Sender: FDA-Public Use
  Company Number: US-ABBOTT-07P-163-0359583-00

PATIENT
  Sex: Female
  Weight: 91 kg

DRUGS (4)
  1. SYNTHROID [Suspect]
     Indication: BLOOD THYROID STIMULATING HORMONE
     Route: 048
     Dates: start: 20070209, end: 20070211
  2. SYNTHROID [Suspect]
     Route: 048
     Dates: start: 20070206, end: 20070209
  3. SYNTHROID [Suspect]
     Route: 048
     Dates: start: 20070213, end: 20070213
  4. SYNTHROID [Suspect]
     Route: 048
     Dates: start: 20070216

REACTIONS (8)
  - ANXIETY [None]
  - CHEST PAIN [None]
  - DYSPNOEA [None]
  - MENSTRUAL DISORDER [None]
  - PHARYNGEAL OEDEMA [None]
  - THROAT TIGHTNESS [None]
  - TREMOR [None]
  - VOMITING [None]
